FAERS Safety Report 9831249 (Version 2)
Quarter: 2014Q1

REPORT INFORMATION
  Report Type: Spontaneous
  Country: US (occurrence: US)
  Receive Date: 20140121
  Receipt Date: 20140127
  Transmission Date: 20141002
  Serious: Yes (Hospitalization, Other)
  Sender: FDA-Public Use
  Company Number: US-BAXTER-2014BAX002270

PATIENT
  Sex: Male

DRUGS (1)
  1. DIANEAL LOW CALCIUM [Suspect]
     Indication: PERITONEAL DIALYSIS
     Route: 033
     Dates: start: 2011

REACTIONS (5)
  - Deafness unilateral [Recovering/Resolving]
  - Carotid artery occlusion [Recovering/Resolving]
  - Pneumonia [Recovering/Resolving]
  - Hypertension [Recovering/Resolving]
  - Fluid retention [Recovering/Resolving]
